FAERS Safety Report 9254350 (Version 1)
Quarter: 2013Q1

REPORT INFORMATION
  Report Type: Spontaneous
  Country: US (occurrence: None)
  Receive Date: 20121210
  Receipt Date: 20121210
  Transmission Date: 20140127
  Serious: No
  Sender: FDA-Public Use
  Company Number: 1209USA003266

PATIENT
  Sex: Male

DRUGS (1)
  1. ZIOPTAN [Suspect]
     Dosage: 1 GTT, QPM, OPHTHALMIC
     Dates: start: 201207

REACTIONS (2)
  - Incorrect storage of drug [None]
  - No adverse event [None]
